FAERS Safety Report 7371914-8 (Version None)
Quarter: 2011Q1

REPORT INFORMATION
  Report Type: 
  Country: None (occurrence: None)
  Receive Date: 20110324
  Receipt Date: 20110317
  Transmission Date: 20110831
  Serious: Yes (Death)
  Sender: FDA-Public Use
  Company Number: US-ROCHE-766667

PATIENT
  Age: 42 Year
  Sex: Female

DRUGS (4)
  1. FENTANYL [Suspect]
     Route: 062
  2. CLONAZEPAM [Suspect]
     Dosage: ONGOING STATUS UNKNOWN AT THE TIME OF DEATH, ROUTE: INGESTION + INHALATION
     Route: 050
  3. HYDROCODONE BITARTRATE [Suspect]
     Route: 065
  4. PARACETAMOL [Suspect]
     Route: 065

REACTIONS (3)
  - TOXICITY TO VARIOUS AGENTS [None]
  - RESPIRATORY ARREST [None]
  - CARDIAC ARREST [None]
